FAERS Safety Report 17707350 (Version 1)
Quarter: 2020Q2

REPORT INFORMATION
  Report Type: Report from Study
  Country: US (occurrence: US)
  Receive Date: 20200424
  Receipt Date: 20200424
  Transmission Date: 20200714
  Serious: Yes (Other)
  Sender: FDA-Public Use
  Company Number: US-GLAXOSMITHKLINE-US2020AMR069982

PATIENT
  Sex: Female

DRUGS (3)
  1. EXCEDRIN MIGRAINE [Concomitant]
     Active Substance: ACETAMINOPHEN\ASPIRIN\CAFFEINE
     Indication: PRODUCT USED FOR UNKNOWN INDICATION
     Dosage: 1 DF AS NEEDED
     Route: 048
  2. BUPROPION HYDROCHLORIDE XL [Suspect]
     Active Substance: BUPROPION HYDROCHLORIDE
     Indication: MAJOR DEPRESSION
     Dosage: 150 MG, QD
     Route: 048
     Dates: start: 202004
  3. METHYLPHENIDATE. [Concomitant]
     Active Substance: METHYLPHENIDATE
     Indication: PRODUCT USED FOR UNKNOWN INDICATION
     Dosage: 18 MG, QD
     Route: 048

REACTIONS (9)
  - Constipation [Unknown]
  - Stress fracture [Unknown]
  - Hypothyroidism [Unknown]
  - Insurance issue [Unknown]
  - Hip fracture [Unknown]
  - Drug interaction [Unknown]
  - Therapy interrupted [Unknown]
  - Autoimmune thyroiditis [Unknown]
  - Bone density decreased [Unknown]
